FAERS Safety Report 25100573 (Version 2)
Quarter: 2025Q3

REPORT INFORMATION
  Report Type: Report from Study
  Country: CA (occurrence: CA)
  Receive Date: 20250320
  Receipt Date: 20250819
  Transmission Date: 20251020
  Serious: Yes (Other)
  Sender: CELLTRION
  Company Number: CA-CELLTRION INC.-2025CA007963

PATIENT

DRUGS (33)
  1. INFLIXIMAB-DYYB [Suspect]
     Active Substance: INFLIXIMAB-DYYB
     Indication: Rheumatoid arthritis
     Dosage: 120MG EVERY 14 DAYS (1 EVERY 2 WEEKS)
     Route: 058
     Dates: start: 20241125, end: 2025
  2. MIRTAZAPINE [Concomitant]
     Active Substance: MIRTAZAPINE
  3. ESOMEPRAZOLE [Concomitant]
     Active Substance: ESOMEPRAZOLE
     Route: 065
  4. VITAMIN D NOS [Concomitant]
     Active Substance: CHOLECALCIFEROL\ERGOCALCIFEROL
  5. NADOLOL [Concomitant]
     Active Substance: NADOLOL
  6. VALACYCLOVIR [Concomitant]
     Active Substance: VALACYCLOVIR HYDROCHLORIDE
  7. CLONAZEPAM [Concomitant]
     Active Substance: CLONAZEPAM
  8. LEUCOVORIN [Concomitant]
     Active Substance: LEUCOVORIN\LEUCOVORIN CALCIUM
  9. CORTEF [Concomitant]
     Active Substance: HYDROCORTISONE
  10. CITALOPRAM [Concomitant]
     Active Substance: CITALOPRAM
  11. LORAZEPAM [Concomitant]
     Active Substance: LORAZEPAM
     Route: 065
  12. ESTRADIOL [Concomitant]
     Active Substance: ESTRADIOL
  13. CALCIUM [Concomitant]
     Active Substance: CALCIUM
  14. TRAZODONE [Concomitant]
     Active Substance: TRAZODONE HYDROCHLORIDE
  15. RISEDRONATE SODIUM [Concomitant]
     Active Substance: RISEDRONATE SODIUM
  16. ADVAIR HFA [Concomitant]
     Active Substance: FLUTICASONE PROPIONATE\SALMETEROL XINAFOATE
  17. SIMVASTATIN [Concomitant]
     Active Substance: SIMVASTATIN
  18. TECNAL [Concomitant]
  19. CELEBREX [Concomitant]
     Active Substance: CELECOXIB
  20. SENNOSIDES [Concomitant]
     Active Substance: SENNOSIDES
  21. DOCUSATE SODIUM [Concomitant]
     Active Substance: DOCUSATE SODIUM
  22. LINACLOTIDE [Concomitant]
     Active Substance: LINACLOTIDE
  23. METHOTREXATE [Concomitant]
     Active Substance: METHOTREXATE
     Route: 037
  24. LUMIGAN [Concomitant]
     Active Substance: BIMATOPROST
  25. ELETRIPTAN [Concomitant]
     Active Substance: ELETRIPTAN
  26. BRIMONIDINE [Concomitant]
     Active Substance: BRIMONIDINE TARTRATE
  27. VENTOLIN [Concomitant]
     Active Substance: ALBUTEROL SULFATE
  28. INDOMETHACIN [Concomitant]
     Active Substance: INDOMETHACIN
  29. LACTULOSE [Concomitant]
     Active Substance: LACTULOSE
  30. ZOLMITRIPTAN [Concomitant]
     Active Substance: ZOLMITRIPTAN
  31. LEUCOVORIN [Concomitant]
     Active Substance: LEUCOVORIN\LEUCOVORIN CALCIUM
  32. RATIO-TECNAL [Concomitant]
  33. SIMVASTATIN [Concomitant]
     Active Substance: SIMVASTATIN

REACTIONS (2)
  - Monoplegia [Unknown]
  - Pain [Unknown]
